FAERS Safety Report 18621425 (Version 1)
Quarter: 2020Q4

REPORT INFORMATION
  Report Type: Spontaneous
  Country: DE (occurrence: DE)
  Receive Date: 20201216
  Receipt Date: 20201216
  Transmission Date: 20210114
  Serious: Yes (Life-Threatening, Hospitalization, Other)
  Sender: FDA-Public Use
  Company Number: DE-GLAXOSMITHKLINE-DE2020246948

PATIENT
  Age: 7 Year
  Sex: Male
  Weight: 13 kg

DRUGS (5)
  1. SPIRONOLACTONE. [Concomitant]
     Active Substance: SPIRONOLACTONE
     Indication: VESICOURETERIC REFLUX
     Dosage: 25 MG, QD (25 MG MILLGRAM(S) EVERY DAYS)
     Route: 048
  2. FLUTIDE [FLUTICASONE PROPIONATE] [Suspect]
     Active Substance: FLUTICASONE PROPIONATE
     Indication: INFECTION PROPHYLAXIS
     Dosage: 250 ?G, QD (250 ?G MICROGRAM(S) EVERY DAYS 2 SEPARATED DOSES)
     Route: 055
  3. WARFARIN [Suspect]
     Active Substance: WARFARIN
     Indication: KABUKI MAKE-UP SYNDROME
     Dosage: 2 MG, QD (2 MG MILLGRAM(S) EVERY DAYS)
     Route: 048
  4. SALBUTAMOL [Concomitant]
     Active Substance: ALBUTEROL
     Indication: INFECTION
     Dosage: 2X0,1 MG (HUB)
     Route: 055
  5. OMEPRAZOL [Concomitant]
     Active Substance: OMEPRAZOLE
     Indication: PROPHYLAXIS
     Dosage: 7.5 MG, QD (7.5 MG MILLGRAM(S) EVERY DAYS)
     Route: 048

REACTIONS (1)
  - Seizure [Recovered/Resolved]

NARRATIVE: CASE EVENT DATE: 20200312
